FAERS Safety Report 10914363 (Version 1)
Quarter: 2015Q1

REPORT INFORMATION
  Report Type: Spontaneous
  Country: US (occurrence: US)
  Receive Date: 20150313
  Receipt Date: 20150313
  Transmission Date: 20150721
  Serious: No
  Sender: FDA-Public Use
  Company Number: US-GLAXOSMITHKLINE-US2015024888

PATIENT
  Sex: Male

DRUGS (1)
  1. ADVAIR HFA [Suspect]
     Active Substance: FLUTICASONE PROPIONATE\SALMETEROL XINAFOATE
     Indication: RESTRICTIVE PULMONARY DISEASE
     Dosage: UNK
     Route: 055
     Dates: end: 201412

REACTIONS (2)
  - Therapeutic response decreased [Unknown]
  - Off label use [Unknown]
